FAERS Safety Report 9869388 (Version 3)
Quarter: 2014Q1

REPORT INFORMATION
  Report Type: Report from Study
  Country: IT (occurrence: IT)
  Receive Date: 20140205
  Receipt Date: 20140321
  Transmission Date: 20141002
  Serious: Yes (Death)
  Sender: FDA-Public Use
  Company Number: PHHY2014IT013670

PATIENT
  Sex: Female
  Weight: 79 kg

DRUGS (1)
  1. CERTICAN [Suspect]
     Indication: IMMUNOSUPPRESSANT DRUG THERAPY
     Dosage: 1.5 MG, DAILY
     Route: 048
     Dates: start: 20050607

REACTIONS (1)
  - Complications of transplanted heart [Fatal]
